FAERS Safety Report 13741205 (Version 2)
Quarter: 2017Q3

REPORT INFORMATION
  Report Type: Spontaneous
  Country: CN (occurrence: CN)
  Receive Date: 20170711
  Receipt Date: 20170720
  Transmission Date: 20171127
  Serious: Yes (Death, Other)
  Sender: FDA-Public Use
  Company Number: CN-ROCHE-1957905

PATIENT
  Age: 58 Year
  Sex: Female
  Weight: 52 kg

DRUGS (30)
  1. GLUCOSE [Concomitant]
     Active Substance: DEXTROSE
     Route: 041
     Dates: start: 20170526, end: 20170526
  2. PANTOPRAZOLE SODIUM. [Concomitant]
     Active Substance: PANTOPRAZOLE SODIUM
     Route: 042
     Dates: start: 20170605
  3. LOW MOLECULAR WEIGHT HEPARIN [Concomitant]
     Active Substance: UNSPECIFIED INGREDIENT
     Route: 058
     Dates: start: 20170525, end: 20170531
  4. GLUCOSE [Concomitant]
     Active Substance: DEXTROSE
     Route: 041
     Dates: start: 20170525, end: 20170531
  5. POTASSIUM CHLORIDE. [Concomitant]
     Active Substance: POTASSIUM CHLORIDE
     Route: 065
     Dates: start: 20170605
  6. MAGNESIUM ASPARTATE [Concomitant]
     Active Substance: MAGNESIUM ASPARTATE
     Route: 065
     Dates: start: 20170607
  7. GLUCOSE [Concomitant]
     Active Substance: DEXTROSE
     Route: 042
     Dates: start: 20170610
  8. POTASSIUM CHLORIDE. [Concomitant]
     Active Substance: POTASSIUM CHLORIDE
     Route: 065
     Dates: start: 20170607
  9. AMINO ACID [Concomitant]
     Active Substance: AMINO ACIDS
     Route: 042
  10. XELODA [Suspect]
     Active Substance: CAPECITABINE
     Indication: GASTRIC CANCER
     Route: 048
     Dates: start: 20170526, end: 20170605
  11. OXALIPLATIN. [Concomitant]
     Active Substance: OXALIPLATIN
     Indication: GASTRIC CANCER
     Route: 041
     Dates: start: 20170526, end: 20170526
  12. BOZHI GLYCOPEPTIDE [Concomitant]
     Route: 041
     Dates: start: 20170525, end: 20170531
  13. GLUCOSE [Concomitant]
     Active Substance: DEXTROSE
     Route: 065
     Dates: start: 20170605
  14. SODIUM CHLORIDE. [Concomitant]
     Active Substance: SODIUM CHLORIDE
     Route: 065
     Dates: start: 20170607
  15. INSULIN [Concomitant]
     Active Substance: INSULIN NOS
     Route: 065
     Dates: start: 20170607
  16. NOREPINEPHRINE. [Concomitant]
     Active Substance: NOREPINEPHRINE
     Route: 065
     Dates: start: 20170609
  17. ULINASTATIN [Concomitant]
     Active Substance: ULINASTATIN
     Route: 042
     Dates: start: 20170609
  18. SODIUM CHLORIDE. [Concomitant]
     Active Substance: SODIUM CHLORIDE
     Route: 042
     Dates: start: 20170526, end: 20170531
  19. SODIUM CHLORIDE. [Concomitant]
     Active Substance: SODIUM CHLORIDE
     Route: 065
     Dates: start: 20170609
  20. SODIUM CHLORIDE. [Concomitant]
     Active Substance: SODIUM CHLORIDE
     Route: 065
     Dates: start: 20170610
  21. INSULIN [Concomitant]
     Active Substance: INSULIN NOS
     Route: 065
     Dates: start: 20170607
  22. TROPISETRON HYDROCHLORIDE [Concomitant]
     Active Substance: TROPISETRON HYDROCHLORIDE
     Indication: GASTRIC CANCER
     Route: 041
     Dates: start: 20170526, end: 20170531
  23. CEFOXITIN SODIUM [Concomitant]
     Active Substance: CEFOXITIN SODIUM
     Indication: INJECTION
     Route: 042
     Dates: start: 20170606
  24. TRAMADOL HYDROCHLORIDE. [Concomitant]
     Active Substance: TRAMADOL HYDROCHLORIDE
     Route: 030
     Dates: start: 20170606, end: 20170606
  25. INSULIN [Concomitant]
     Active Substance: INSULIN NOS
     Indication: PYREXIA
     Route: 065
     Dates: start: 20170606
  26. FUROSEMIDE. [Concomitant]
     Active Substance: FUROSEMIDE
     Indication: POLYURIA
     Route: 042
     Dates: start: 20170610
  27. LOPERAMIDE [Concomitant]
     Active Substance: LOPERAMIDE
     Route: 048
  28. GLUCOSE [Concomitant]
     Active Substance: DEXTROSE
     Route: 065
  29. IMIPENEM [Concomitant]
     Active Substance: IMIPENEM
     Route: 065
     Dates: start: 20170610
  30. CILASTATIN SODIUM [Concomitant]
     Active Substance: CILASTATIN SODIUM
     Route: 065
     Dates: start: 20170610

REACTIONS (6)
  - Hypoproteinaemia [Unknown]
  - Diarrhoea [Unknown]
  - Pyrexia [Unknown]
  - Circulatory collapse [Fatal]
  - Acute kidney injury [Fatal]
  - Multiple organ dysfunction syndrome [Fatal]

NARRATIVE: CASE EVENT DATE: 20170601
